FAERS Safety Report 8494710-7 (Version None)
Quarter: 2012Q3

REPORT INFORMATION
  Report Type: 
  Country: None (occurrence: None)
  Receive Date: 20120709
  Receipt Date: 20120629
  Transmission Date: 20120928
  Serious: Yes (Other)
  Sender: FDA-Public Use
  Company Number: US-JNJFOC-20120700555

PATIENT
  Sex: Female
  Weight: 140.16 kg

DRUGS (9)
  1. METOPROLOL TARTRATE [Concomitant]
     Route: 065
  2. LANTUS [Concomitant]
     Indication: DIABETES MELLITUS
     Route: 065
  3. ALLEGRA [Concomitant]
     Route: 065
  4. LISINOPRIL [Concomitant]
     Route: 065
  5. REMICADE [Suspect]
     Indication: CROHN'S DISEASE
     Route: 042
     Dates: start: 20040101
  6. GLIPIZIDE [Concomitant]
     Indication: DIABETES MELLITUS
     Route: 065
  7. METFORMIN HCL [Concomitant]
     Indication: DIABETES MELLITUS
     Route: 065
  8. ASPIRIN [Concomitant]
     Route: 065
  9. LOVASTATIN [Concomitant]
     Route: 065

REACTIONS (1)
  - TUBERCULOSIS [None]
